FAERS Safety Report 6665513-0 (Version None)
Quarter: 2010Q1

REPORT INFORMATION
  Report Type: 
  Country: None (occurrence: None)
  Receive Date: 20100325
  Receipt Date: 20100119
  Transmission Date: 20100710
  Serious: No
  Sender: FDA-Public Use
  Company Number: 2010-00062

PATIENT
  Age: 61 Year
  Sex: Male
  Weight: 99.7913 kg

DRUGS (7)
  1. ZICAM COLD REMEDY RAPIDMELTS [Suspect]
     Dosage: 3-4 HOURS, 4 DAYS
     Dates: start: 20100110, end: 20100114
  2. ASPIRIN [Concomitant]
  3. TYLENOL-500 [Concomitant]
  4. LOTREL [Concomitant]
  5. ZOCOR [Concomitant]
  6. GARDEN OF LIFE VITAMIN CODE VITAMIN [Concomitant]
  7. HALL'S LOZENGES [Concomitant]

REACTIONS (2)
  - AGEUSIA [None]
  - ANOSMIA [None]
